FAERS Safety Report 8615818-9 (Version None)
Quarter: 2012Q3

REPORT INFORMATION
  Report Type: 
  Country: None (occurrence: None)
  Receive Date: 20120823
  Receipt Date: 20120822
  Transmission Date: 20120928
  Serious: Yes (Death, Hospitalization)
  Sender: FDA-Public Use
  Company Number: PHHY2012AU072195

PATIENT
  Age: 85 Year
  Sex: Female

DRUGS (2)
  1. VORICONAZOLE [Interacting]
     Dosage: 200 MG, BID
     Route: 048
  2. SIMVASTATIN [Suspect]
     Dosage: 20 MG, DAILY

REACTIONS (5)
  - DRUG INTERACTION [None]
  - RESPIRATORY FAILURE [None]
  - RESPIRATORY MUSCLE WEAKNESS [None]
  - RHABDOMYOLYSIS [None]
  - ASTHENIA [None]
